FAERS Safety Report 14301430 (Version 5)
Quarter: 2018Q3

REPORT INFORMATION
  Report Type: Spontaneous
  Country: FR (occurrence: FR)
  Receive Date: 20171219
  Receipt Date: 20180720
  Transmission Date: 20181010
  Serious: Yes (Disabling, Other)
  Sender: FDA-Public Use
  Company Number: FR-APOTEX-2017AP022676

PATIENT
  Age: 32 Year
  Sex: Male

DRUGS (52)
  1. RIVOTRIL [Suspect]
     Active Substance: CLONAZEPAM
     Dosage: UNK
     Route: 065
  2. TETRAZEPAM [Suspect]
     Active Substance: TETRAZEPAM
     Dosage: UNK
     Route: 048
  3. IXEL [Suspect]
     Active Substance: MILNACIPRAN HYDROCHLORIDE
     Indication: PANIC ATTACK
     Dosage: 2 DF, QD
     Route: 048
     Dates: start: 20110322
  4. DI?ANTALVIC [Suspect]
     Active Substance: ACETAMINOPHEN\PROPOXYPHENE HYDROCHLORIDE
     Indication: PAIN
     Dosage: 2 DF, UNK
     Route: 048
     Dates: start: 20100606
  5. NUREFLEX [Concomitant]
     Active Substance: IBUPROFEN
     Dosage: UNK
     Route: 048
  6. TEMERIT TABLET [Suspect]
     Active Substance: NEBIVOLOL HYDROCHLORIDE
     Dosage: 2 DF, QD
     Route: 048
     Dates: start: 20101115, end: 20110509
  7. IXEL TABLET [Suspect]
     Active Substance: MILNACIPRAN HYDROCHLORIDE
     Indication: PANIC ATTACK
     Dosage: 2 DF, QD
     Route: 048
     Dates: start: 20110322
  8. DOLIPRANE TABLET [Concomitant]
     Indication: PRODUCT USED FOR UNKNOWN INDICATION
     Dosage: 1 DF, QD
     Route: 048
     Dates: start: 20110201
  9. UVEDOSE [Concomitant]
     Active Substance: CHOLECALCIFEROL
     Indication: PRODUCT USED FOR UNKNOWN INDICATION
     Dosage: 1000000 IU
     Route: 065
     Dates: start: 20110219
  10. PRAXINOR                           /00276601/ [Concomitant]
     Active Substance: CAFEDRINE\THEODRENALINE
     Indication: PRODUCT USED FOR UNKNOWN INDICATION
     Dosage: 2 DF, QD
     Route: 048
     Dates: start: 20101127
  11. RIVOTRIL [Suspect]
     Active Substance: CLONAZEPAM
     Indication: NECK PAIN
     Dosage: UNK
     Route: 016
  12. PRAXINOR                           /00276601/ [Concomitant]
     Active Substance: CAFEDRINE\THEODRENALINE
     Indication: PRODUCT USED FOR UNKNOWN INDICATION
     Dosage: 2 DF, QD
     Route: 048
     Dates: start: 20101127
  13. DOLIPRANE [Concomitant]
     Active Substance: ACETAMINOPHEN
     Indication: PRODUCT USED FOR UNKNOWN INDICATION
     Dosage: 3 DF, QD
     Route: 048
     Dates: start: 20101213
  14. PAROXETINE. [Suspect]
     Active Substance: PAROXETINE
     Indication: PRODUCT USED FOR UNKNOWN INDICATION
     Dosage: 2 TO 3 WEEKS
     Route: 048
  15. LAROXYL [Suspect]
     Active Substance: AMITRIPTYLINE HYDROCHLORIDE
     Indication: NECK PAIN
  16. RIVOTRIL [Suspect]
     Active Substance: CLONAZEPAM
     Dosage: 15 DROPS
     Route: 065
     Dates: start: 20110303, end: 20110327
  17. VALIUM [Concomitant]
     Active Substance: DIAZEPAM
     Indication: PRODUCT USED FOR UNKNOWN INDICATION
     Dosage: IN TOTAL
     Route: 051
     Dates: start: 20101115, end: 20101115
  18. DI?ANTALVIC CAPSULE [Suspect]
     Active Substance: ACETAMINOPHEN\PROPOXYPHENE HYDROCHLORIDE
     Indication: PAIN
     Dosage: 2 DF, UNK
     Route: 048
     Dates: start: 20100606
  19. PAROXETINE TABLET [Suspect]
     Active Substance: PAROXETINE
     Indication: PRODUCT USED FOR UNKNOWN INDICATION
     Dosage: 2 TO 3 WEEKS
     Route: 048
  20. TETRAZEPAM [Suspect]
     Active Substance: TETRAZEPAM
     Indication: PRODUCT USED FOR UNKNOWN INDICATION
     Dosage: UNK
     Route: 048
  21. TEMERIT [Suspect]
     Active Substance: NEBIVOLOL
     Indication: CARDIAC DISORDER
     Dosage: 2 DF, QD
     Route: 048
     Dates: start: 20110718, end: 201207
  22. TEMERIT TABLET [Suspect]
     Active Substance: NEBIVOLOL HYDROCHLORIDE
     Dosage: 2 DF, QD
     Route: 048
     Dates: start: 20110718, end: 201207
  23. SEROPRAM (CITALOPRAM HYDROBROMIDE) [Suspect]
     Active Substance: CITALOPRAM HYDROBROMIDE
     Indication: PRODUCT USED FOR UNKNOWN INDICATION
     Dosage: UNK
     Route: 048
  24. SOLUPRED [Concomitant]
     Indication: PRODUCT USED FOR UNKNOWN INDICATION
     Dosage: UNK
     Route: 048
  25. LAROXYL [Suspect]
     Active Substance: AMITRIPTYLINE HYDROCHLORIDE
     Indication: NECK PAIN
     Dosage: 5?8 DROPS
     Route: 065
     Dates: start: 20110219
  26. RIVOTRIL [Suspect]
     Active Substance: CLONAZEPAM
     Dosage: UNK
     Route: 065
  27. ATARAX [Suspect]
     Active Substance: HYDROXYZINE HYDROCHLORIDE
     Indication: PRODUCT USED FOR UNKNOWN INDICATION
     Dosage: UNK
     Route: 048
  28. TEMERIT [Suspect]
     Active Substance: NEBIVOLOL
     Dosage: 2 DF, QD
     Route: 048
     Dates: start: 20101115, end: 20110509
  29. THIOCOLCHICOSIDE [Concomitant]
     Active Substance: THIOCOLCHICOSIDE
     Indication: PRODUCT USED FOR UNKNOWN INDICATION
     Dosage: 3 DF, QD
     Route: 048
     Dates: start: 20101213
  30. DOLIPRANE TABLET [Concomitant]
     Dosage: 1 DF, QD
     Route: 048
     Dates: start: 20101213
  31. RIVOTRIL [Suspect]
     Active Substance: CLONAZEPAM
     Indication: NECK PAIN
     Dosage: UNK
     Route: 065
     Dates: start: 20110219, end: 20110302
  32. RIVOTRIL [Suspect]
     Active Substance: CLONAZEPAM
     Dosage: 5?8 DROPS
     Route: 065
     Dates: start: 20110328
  33. THIOCOLCHICOSIDE [Concomitant]
     Active Substance: THIOCOLCHICOSIDE
     Dosage: 3 DF, QD
     Route: 048
     Dates: start: 20101210
  34. STRESAM [Concomitant]
     Active Substance: ETIFOXINE
     Indication: PRODUCT USED FOR UNKNOWN INDICATION
     Dosage: UNK
     Route: 048
  35. NUREFLEX [Concomitant]
     Active Substance: IBUPROFEN
     Indication: PRODUCT USED FOR UNKNOWN INDICATION
     Dosage: UNK
     Route: 048
  36. SOLUPRED                           /00016201/ [Concomitant]
     Active Substance: PREDNISOLONE
     Indication: PRODUCT USED FOR UNKNOWN INDICATION
     Dosage: UNK
     Route: 048
  37. COVATINE [Concomitant]
     Active Substance: CAPTODIAME HYDROCHLORIDE
     Indication: PRODUCT USED FOR UNKNOWN INDICATION
     Route: 048
  38. TANGANIL [Concomitant]
     Active Substance: ACETYLLEUCINE
     Indication: PRODUCT USED FOR UNKNOWN INDICATION
     Dosage: 3 DF, QD
     Route: 048
     Dates: start: 20110303
  39. TEMERIT [Suspect]
     Active Substance: NEBIVOLOL
     Dosage: 2 DF, QD
     Route: 048
     Dates: start: 20110510, end: 201207
  40. SEROPRAM (CITALOPRAM HYDROCHLORIDE) [Suspect]
     Active Substance: CITALOPRAM HYDROCHLORIDE
     Indication: PRODUCT USED FOR UNKNOWN INDICATION
     Dosage: UNK
     Route: 048
  41. DOLIPRANE [Concomitant]
     Active Substance: ACETAMINOPHEN
     Dosage: 3 DF, QD
     Route: 048
     Dates: start: 20110328
  42. UVEDOSE [Concomitant]
     Active Substance: CHOLECALCIFEROL
     Indication: PRODUCT USED FOR UNKNOWN INDICATION
     Dosage: 1000000 IU
     Route: 065
     Dates: start: 20110219
  43. THIOCOLCHICOSIDE [Concomitant]
     Active Substance: THIOCOLCHICOSIDE
     Dosage: 3 DF, QD
     Route: 048
     Dates: start: 20110201
  44. TANGANIL [Concomitant]
     Active Substance: ACETYLLEUCINE
     Indication: PRODUCT USED FOR UNKNOWN INDICATION
     Dosage: 3 DF, QD
     Route: 048
     Dates: start: 20110303
  45. COVATINE [Concomitant]
     Active Substance: CAPTODIAME HYDROCHLORIDE
     Dosage: UNK
  46. TEMERIT TABLET [Suspect]
     Active Substance: NEBIVOLOL HYDROCHLORIDE
     Indication: CARDIAC DISORDER
     Dosage: 2 DF, QD
     Route: 048
     Dates: start: 20110510, end: 201207
  47. TETRAZEPAM [Suspect]
     Active Substance: TETRAZEPAM
     Dosage: UNK
     Route: 048
  48. DOLIPRANE [Concomitant]
     Active Substance: ACETAMINOPHEN
     Dosage: 3 DF, QD
     Route: 048
     Dates: start: 20110201
  49. THIOCOLCHICOSIDE [Concomitant]
     Active Substance: THIOCOLCHICOSIDE
     Dosage: 3 DF, QD
     Route: 048
     Dates: start: 20100606
  50. ATARAX [Suspect]
     Active Substance: HYDROXYZINE HYDROCHLORIDE
     Indication: PRODUCT USED FOR UNKNOWN INDICATION
     Dosage: UNK
     Route: 048
  51. VALIUM SOLUTION FOR INJECTION [Concomitant]
     Indication: PRODUCT USED FOR UNKNOWN INDICATION
     Dosage: IN TOTAL
     Route: 051
     Dates: start: 20101115, end: 20101115
  52. DOLIPRANE TABLET [Concomitant]
     Dosage: 1 DF, QD
     Route: 048
     Dates: start: 20110328

REACTIONS (25)
  - Asthenia [Unknown]
  - Musculoskeletal pain [Unknown]
  - Malaise [Recovered/Resolved]
  - Panic attack [Recovered/Resolved]
  - Post-traumatic stress disorder [Recovered/Resolved]
  - Personal relationship issue [Recovered/Resolved]
  - Pain in extremity [Unknown]
  - Neurosis [Recovered/Resolved]
  - Psychotic disorder [Recovered/Resolved]
  - Tinnitus [Recovered/Resolved]
  - Hallucination, auditory [Recovered/Resolved]
  - Discomfort [None]
  - Adverse event [Unknown]
  - Anxiety [Recovered/Resolved]
  - Dyspnoea [Unknown]
  - Intervertebral disc disorder [Unknown]
  - Suicidal ideation [Recovered/Resolved]
  - Erectile dysfunction [Recovering/Resolving]
  - Visual impairment [Recovered/Resolved]
  - Tachycardia [Recovered/Resolved]
  - Hypoacusis [Recovered/Resolved]
  - Hypertonia [Unknown]
  - Memory impairment [Recovered/Resolved]
  - Drug intolerance [Recovering/Resolving]
  - Agoraphobia [Recovered/Resolved]

NARRATIVE: CASE EVENT DATE: 2010
